FAERS Safety Report 25731910 (Version 1)
Quarter: 2025Q3

REPORT INFORMATION
  Report Type: Report from Study
  Country: GB (occurrence: GB)
  Receive Date: 20250827
  Receipt Date: 20250827
  Transmission Date: 20251020
  Serious: Yes (Other)
  Sender: MDD OPERATIONS
  Company Number: GB-002147023-MDD202506-002183

PATIENT
  Age: 80 Year
  Sex: Female

DRUGS (9)
  1. APOMORPHINE [Suspect]
     Active Substance: APOMORPHINE
     Indication: Parkinson^s disease
     Route: 058
     Dates: start: 20240819
  2. APOMORPHINE [Suspect]
     Active Substance: APOMORPHINE
     Dosage: TOTAL DAILY DOSE: 21.00 MG/DAY
     Route: 058
     Dates: start: 20250114, end: 20250813
  3. SINEMET [Concomitant]
     Active Substance: CARBIDOPA\LEVODOPA
     Indication: Parkinson^s disease
  4. Half Sinemet [Concomitant]
     Indication: Parkinson^s disease
  5. BENSERAZIDE HYDROCHLORIDE\LEVODOPA [Concomitant]
     Active Substance: BENSERAZIDE HYDROCHLORIDE\LEVODOPA
     Indication: Parkinson^s disease
  6. LANSOPRAZOLE [Concomitant]
     Active Substance: LANSOPRAZOLE
  7. LOSARTAN [Concomitant]
     Active Substance: LOSARTAN
  8. BISOPROLOL [Concomitant]
     Active Substance: BISOPROLOL
  9. INDAPAMIDE [Concomitant]
     Active Substance: INDAPAMIDE

REACTIONS (5)
  - Infusion site necrosis [Unknown]
  - Infusion site pain [Unknown]
  - Condition aggravated [Unknown]
  - Infusion site nodule [Unknown]
  - Infusion site bruising [Unknown]

NARRATIVE: CASE EVENT DATE: 20250101
